FAERS Safety Report 7897496-X (Version None)
Quarter: 2011Q4

REPORT INFORMATION
  Report Type: 
  Country: None (occurrence: None)
  Receive Date: 20111107
  Receipt Date: 20111025
  Transmission Date: 20120403
  Serious: Yes (Hospitalization)
  Sender: FDA-Public Use
  Company Number: NG-SANOFI-AVENTIS-2011SA071631

PATIENT
  Age: 10 Year
  Sex: Male

DRUGS (3)
  1. POTASSIUM [Concomitant]
  2. PENICILLIN G, CRYSTALLINE [Concomitant]
  3. FUROSEMIDE [Suspect]
     Route: 065

REACTIONS (2)
  - ELECTROLYTE IMBALANCE [None]
  - ILEUS [None]
